FAERS Safety Report 9741471 (Version 1)
Quarter: 2013Q4

REPORT INFORMATION
  Report Type: Report from Study
  Country: BR (occurrence: BR)
  Receive Date: 20131209
  Receipt Date: 20131209
  Transmission Date: 20140711
  Serious: Yes (Other)
  Sender: FDA-Public Use
  Company Number: PHHY2013BR143519

PATIENT
  Sex: Female
  Weight: 45 kg

DRUGS (4)
  1. ACLASTA [Suspect]
     Indication: OSTEOPOROSIS
     Dosage: 5 MG, UNK
     Route: 042
     Dates: start: 2011
  2. RIVOTRIL [Concomitant]
     Dosage: UNK UKN, UNK
     Dates: start: 2002
  3. PONDERA [Concomitant]
     Dosage: UNK UKN, UNK
     Dates: start: 2006
  4. PURAN T4 [Concomitant]
     Dosage: UNK UKN, UNK
     Dates: start: 2005

REACTIONS (8)
  - Synovial cyst [Not Recovered/Not Resolved]
  - Osteopenia [Not Recovered/Not Resolved]
  - Osteoarthritis [Not Recovered/Not Resolved]
  - Spinal pain [Not Recovered/Not Resolved]
  - Arthritis [Not Recovered/Not Resolved]
  - Back pain [Not Recovered/Not Resolved]
  - Myalgia [Not Recovered/Not Resolved]
  - Arthralgia [Not Recovered/Not Resolved]
